FAERS Safety Report 11008960 (Version 1)
Quarter: 2015Q2

REPORT INFORMATION
  Report Type: Spontaneous
  Country: JP (occurrence: None)
  Receive Date: 20150408
  Receipt Date: 20150408
  Transmission Date: 20150821
  Serious: Yes (Death, Hospitalization)
  Sender: FDA-Public Use
  Company Number: INT_00727_2015

PATIENT
  Age: 74 Year
  Sex: Male

DRUGS (2)
  1. TS-1 [Suspect]
     Active Substance: GIMERACIL\OTERACIL\TEGAFUR
     Dosage: (BID ON DAYS 1-21 EVERY 35 DAYS)
  2. CISPLATIN (CISPLATIN) (HQ SPECIALTY) [Suspect]
     Active Substance: CISPLATIN
     Indication: GASTRIC CANCER
     Dosage: 60 MG/M2 [ON DAY 8 EVERY 35 DAYS] INTRAVENOUS (NOT OTHERWISE SPECIFIED)?
     Route: 042

REACTIONS (4)
  - Diarrhoea [None]
  - Decreased appetite [None]
  - Arrhythmia [None]
  - Dehydration [None]
